FAERS Safety Report 16724241 (Version 1)
Quarter: 2019Q3

REPORT INFORMATION
  Report Type: Report from Study
  Country: US (occurrence: US)
  Receive Date: 20190821
  Receipt Date: 20190821
  Transmission Date: 20191005
  Serious: Yes (Other)
  Sender: FDA-Public Use
  Company Number: US-ROCHE-2374953

PATIENT
  Sex: Female
  Weight: 63.56 kg

DRUGS (1)
  1. OCREVUS [Suspect]
     Active Substance: OCRELIZUMAB
     Indication: MULTIPLE SCLEROSIS
     Dosage: 09/AUG/2017, 28/FEB/2018, 30/JUL/2018, 30/JAN/2019
     Route: 065
     Dates: start: 20170724

REACTIONS (1)
  - Urinary tract infection [Recovering/Resolving]
